FAERS Safety Report 4350373-3 (Version None)
Quarter: 2004Q2

REPORT INFORMATION
  Report Type: 
  Country: None (occurrence: None)
  Receive Date: 20040430
  Receipt Date: 20030523
  Transmission Date: 20050107
  Serious: No
  Sender: FDA-Public Use
  Company Number: US-BRISTOL-MYERS SQUIBB COMPANY-12284071

PATIENT
  Age: 69 Year
  Sex: Female
  Weight: 61 kg

DRUGS (7)
  1. LAC-HYDRIN [Suspect]
     Route: 061
     Dates: start: 20030422
  2. VITAMIN E [Concomitant]
  3. VITAMIN C [Concomitant]
  4. VITAMIN D [Concomitant]
  5. MULTI-VITAMIN [Concomitant]
  6. MAGNESIUM [Concomitant]
  7. POTASSIUM [Concomitant]

REACTIONS (1)
  - ERYTHEMA [None]
